FAERS Safety Report 5590026-7 (Version None)
Quarter: 2008Q1

REPORT INFORMATION
  Report Type: 
  Country: None (occurrence: None)
  Receive Date: 20080114
  Receipt Date: 20070116
  Transmission Date: 20080703
  Serious: No
  Sender: FDA-Public Use
  Company Number: US-ABBOTT-07P-163-0356437-00

PATIENT
  Sex: Male
  Weight: 29.51 kg

DRUGS (3)
  1. OMNICEF [Suspect]
     Indication: BRONCHITIS
     Route: 048
     Dates: start: 20070107, end: 20070111
  2. ALBUTEROL [Concomitant]
     Indication: ASTHMA
     Route: 055
  3. BUDESONIDE [Concomitant]
     Indication: BRONCHITIS
     Route: 055

REACTIONS (4)
  - FAECES DISCOLOURED [None]
  - HEART RATE INCREASED [None]
  - OVERDOSE [None]
  - PALLOR [None]
